FAERS Safety Report 8981977 (Version 4)
Quarter: 2013Q2

REPORT INFORMATION
  Report Type: Spontaneous
  Country: JP (occurrence: JP)
  Receive Date: 20121223
  Receipt Date: 20130502
  Transmission Date: 20140414
  Serious: Yes (Other)
  Sender: FDA-Public Use
  Company Number: JP-009507513-1212JPN006269

PATIENT
  Age: 48 Year
  Sex: Female
  Weight: 61 kg

DRUGS (25)
  1. GASTER [Suspect]
     Indication: PROPHYLAXIS AGAINST GASTROINTESTINAL ULCER
     Dosage: 20 MG, QD
     Route: 042
     Dates: start: 20121024, end: 20121027
  2. GASTER [Suspect]
     Dosage: IV DRIP
     Route: 042
     Dates: start: 20120626
  3. GASTER [Suspect]
     Dosage: IV DRIP
     Route: 042
  4. GASTER [Suspect]
     Dosage: 20 MG, QD
     Route: 042
     Dates: start: 20121127
  5. DECADRON PHOSPHATE INJECTION 6.6MG [Suspect]
     Indication: VOMITING
     Dosage: 6.6 MG, QD
     Route: 042
     Dates: start: 20121024, end: 20121027
  6. DECADRON PHOSPHATE INJECTION 6.6MG [Suspect]
     Dosage: IV DRIP
     Route: 042
     Dates: start: 20120926
  7. DECADRON PHOSPHATE INJECTION 6.6MG [Suspect]
     Dosage: IV DRIP
     Route: 042
  8. DECADRON PHOSPHATE INJECTION 6.6MG [Suspect]
     Dosage: 6.6 MG, QD
     Route: 042
     Dates: start: 20121127
  9. METHOTREXATE [Suspect]
     Indication: BENIGN HYDATIDIFORM MOLE
     Dosage: 50 MG, QOD
     Route: 030
     Dates: start: 20121024, end: 20121030
  10. METHOTREXATE [Suspect]
     Dosage: UNK
     Route: 030
     Dates: start: 20120926
  11. METHOTREXATE [Suspect]
     Dosage: UNK
     Route: 030
  12. METHOTREXATE [Suspect]
     Dosage: 50 MG, QOD
     Route: 030
     Dates: start: 20121127
  13. COSMEGEN [Suspect]
     Indication: BENIGN HYDATIDIFORM MOLE
     Dosage: 0.5 MG, QD
     Route: 042
     Dates: start: 20121024, end: 20121027
  14. COSMEGEN [Suspect]
     Dosage: UNK
     Route: 042
     Dates: start: 20120926
  15. COSMEGEN [Suspect]
     Dosage: UNK
     Route: 042
  16. COSMEGEN [Suspect]
     Dosage: 0.5 MG, QD
     Route: 042
     Dates: start: 20121127
  17. LEUCOVORIN CALCIUM [Concomitant]
  18. HEPARIN SODIUM [Concomitant]
     Dosage: UNK
     Dates: start: 20121101
  19. PLETAAL [Concomitant]
     Dosage: UNK
     Dates: start: 20121101
  20. GRANISETRON [Concomitant]
  21. MEYLON [Concomitant]
  22. SOLDEM 1 [Concomitant]
  23. WARFARIN [Concomitant]
     Dosage: UNK
     Route: 048
     Dates: start: 20121101
  24. DEXTROSE [Concomitant]
     Dosage: UNK
  25. SODIUM CHLORIDE [Concomitant]
     Dosage: UNK

REACTIONS (1)
  - Embolism arterial [Unknown]
